FAERS Safety Report 5371121-4 (Version None)
Quarter: 2007Q2

REPORT INFORMATION
  Report Type: 
  Country: None (occurrence: None)
  Receive Date: 20070622
  Receipt Date: 20070607
  Transmission Date: 20071010
  Serious: Yes (Other)
  Sender: FDA-Public Use
  Company Number: 07-001290

PATIENT
  Age: 22 Year
  Sex: Male

DRUGS (2)
  1. DORYX [Suspect]
     Indication: BRUCELLOSIS
     Dosage: QD, ORAL
     Route: 048
  2. GENTAMICIN [Suspect]

REACTIONS (3)
  - BRUCELLOSIS [None]
  - DISEASE RECURRENCE [None]
  - DRUG INEFFECTIVE [None]
